FAERS Safety Report 12055471 (Version 4)
Quarter: 2018Q1

REPORT INFORMATION
  Report Type: Spontaneous
  Country: US (occurrence: US)
  Receive Date: 20160209
  Receipt Date: 20180125
  Transmission Date: 20180508
  Serious: No
  Sender: FDA-Public Use
  Company Number: US-ABBVIE-15P-163-1511215-00

PATIENT

DRUGS (2)
  1. HUMIRA [Suspect]
     Active Substance: ADALIMUMAB
     Indication: PRODUCT USED FOR UNKNOWN INDICATION
     Route: 058
  2. PREDNISONE. [Suspect]
     Active Substance: PREDNISONE
     Indication: PRODUCT USED FOR UNKNOWN INDICATION
     Route: 065

REACTIONS (12)
  - Weight increased [Unknown]
  - Dry mouth [Unknown]
  - Mobility decreased [Unknown]
  - Adverse drug reaction [Unknown]
  - Muscular weakness [Unknown]
  - Feeling hot [Unknown]
  - Blood iron decreased [Unknown]
  - Influenza [Unknown]
  - Malabsorption [Unknown]
  - Gait disturbance [Unknown]
  - Influenza like illness [Unknown]
  - Anxiety [Unknown]

NARRATIVE: CASE EVENT DATE: 20170726
